FAERS Safety Report 7709657-0 (Version None)
Quarter: 2011Q3

REPORT INFORMATION
  Report Type: 
  Country: None (occurrence: None)
  Receive Date: 20110825
  Receipt Date: 20110817
  Transmission Date: 20111222
  Serious: Yes (Hospitalization)
  Sender: FDA-Public Use
  Company Number: US-GLAXOSMITHKLINE-A0941368A

PATIENT
  Age: 68 Year
  Sex: Female

DRUGS (7)
  1. NEXIUM [Concomitant]
  2. ZOFRAN [Concomitant]
  3. TYKERB [Suspect]
     Indication: BREAST CANCER
     Dosage: 5TAB PER DAY
     Route: 048
     Dates: start: 20090101, end: 20090101
  4. MULTI-VITAMIN [Concomitant]
  5. XELODA [Suspect]
     Indication: PRODUCT USED FOR UNKNOWN INDICATION
     Route: 065
     Dates: start: 20090101, end: 20090101
  6. COREG [Concomitant]
  7. COUMADIN [Concomitant]

REACTIONS (4)
  - DEHYDRATION [None]
  - VOMITING [None]
  - DIARRHOEA [None]
  - ELECTROLYTE IMBALANCE [None]
